FAERS Safety Report 16197934 (Version 1)
Quarter: 2019Q2

REPORT INFORMATION
  Report Type: Spontaneous
  Country: US (occurrence: US)
  Receive Date: 20190415
  Receipt Date: 20190415
  Transmission Date: 20190711
  Serious: No
  Sender: FDA-Public Use
  Company Number: US-PFIZER INC-2019160100

PATIENT
  Sex: Female

DRUGS (2)
  1. PREMARIN [Suspect]
     Active Substance: ESTROGENS, CONJUGATED
     Dosage: UNK
  2. WELLBUTRIN [Concomitant]
     Active Substance: BUPROPION HYDROCHLORIDE
     Dosage: UNK

REACTIONS (7)
  - Hot flush [Unknown]
  - Weight increased [Unknown]
  - Blood pressure increased [Unknown]
  - Sleep disorder [Unknown]
  - Stress cardiomyopathy [Unknown]
  - Poor quality sleep [Unknown]
  - Feeling abnormal [Unknown]
